FAERS Safety Report 8589948-4 (Version None)
Quarter: 2012Q3

REPORT INFORMATION
  Report Type: 
  Country: None (occurrence: None)
  Receive Date: 20120813
  Receipt Date: 20120807
  Transmission Date: 20120928
  Serious: Yes (Hospitalization)
  Sender: FDA-Public Use
  Company Number: DE-UCBSA-063341

PATIENT
  Sex: Female

DRUGS (13)
  1. LISINOPRIL [Concomitant]
  2. NEBIVOLOL HCL [Concomitant]
  3. LEFLUNOMIDE [Suspect]
     Dates: start: 20100801
  4. PREDNISOLONE [Suspect]
     Dates: start: 20110701
  5. TILIDINE [Concomitant]
     Dosage: 150/8 MG
     Dates: start: 20100701
  6. NEBIVOLOL HCL [Concomitant]
     Dosage: DAILY DOSE: 5 MG
  7. CIMZIA [Suspect]
     Indication: RHEUMATOID ARTHRITIS
     Dosage: CUMULATIVE DOSE : 1200 MG
     Dates: start: 20110701, end: 20120104
  8. PREDNISOLONE [Suspect]
     Dosage: VARYING DOSES
     Dates: start: 20080731
  9. OMEPRAZOLE [Concomitant]
     Dosage: 20 MG
  10. FOSAVANCE [Concomitant]
     Dosage: WEDNESDAYS
  11. LISINOPRIL [Concomitant]
     Dosage: DAILY DOSE: 10 MG
  12. FALITHROM [Concomitant]
     Dosage: 17-JAN 1 + A HALF TAB,18 JAN 1 TAB, 19-JAN 2 TAB, 20-22 JAN 1 TAB
  13. AMLODIPINE [Concomitant]

REACTIONS (1)
  - ABSCESS LIMB [None]
